FAERS Safety Report 21747736 (Version 2)
Quarter: 2023Q1

REPORT INFORMATION
  Report Type: Spontaneous
  Country: US (occurrence: US)
  Receive Date: 20221219
  Receipt Date: 20230216
  Transmission Date: 20230418
  Serious: No
  Sender: FDA-Public Use
  Company Number: US-SA-SAC20221216001504

PATIENT
  Sex: Female
  Weight: 81.6 kg

DRUGS (17)
  1. DUPIXENT [Suspect]
     Active Substance: DUPILUMAB
     Indication: Asthma
     Dosage: 300 MG, QOW
     Route: 058
  2. OFEV [Concomitant]
     Active Substance: NINTEDANIB
     Dosage: 2 MG
  3. IPRATROPIUM [Concomitant]
     Active Substance: IPRATROPIUM
     Dosage: 2MG
  4. ALBUTEROL SULFATE [Concomitant]
     Active Substance: ALBUTEROL SULFATE
     Dosage: 2MG
  5. TRELEGY ELLIPTA [Concomitant]
     Active Substance: FLUTICASONE FUROATE\UMECLIDINIUM BROMIDE\VILANTEROL TRIFENATATE
  6. ALBUTEROL SULFATE [Concomitant]
     Active Substance: ALBUTEROL SULFATE
     Dosage: 5MG
  7. XYZAL [Concomitant]
     Active Substance: LEVOCETIRIZINE DIHYDROCHLORIDE
     Dosage: 81MG
  8. ASPIRIN [Concomitant]
     Active Substance: ASPIRIN
     Dosage: 5MG
  9. HYDROCODONE [Concomitant]
     Active Substance: HYDROCODONE
     Dosage: 500MG
  10. ACETAMINOPHEN [Concomitant]
     Active Substance: ACETAMINOPHEN
     Dosage: 500MG
  11. CEFADROXIL [Concomitant]
     Active Substance: CEFADROXIL
     Dosage: 50MG
  12. MYRBETRIQ [Concomitant]
     Active Substance: MIRABEGRON
     Dosage: 500MG
  13. ZANAFLEX [Concomitant]
     Active Substance: TIZANIDINE HYDROCHLORIDE
     Dosage: 05MG
  14. XANAX [Concomitant]
     Active Substance: ALPRAZOLAM
     Dosage: 400MG
  15. ACYCLOVIR [Concomitant]
     Active Substance: ACYCLOVIR
     Dosage: 40MG
  16. OMEPRAZOLE [Concomitant]
     Active Substance: OMEPRAZOLE
     Dosage: 400MG
  17. CELEBREX [Concomitant]
     Active Substance: CELECOXIB
     Dosage: 40MG

REACTIONS (3)
  - Nausea [Recovered/Resolved]
  - Diarrhoea [Recovered/Resolved]
  - Abdominal discomfort [Unknown]
